FAERS Safety Report 9327044 (Version 2)
Quarter: 2013Q4

REPORT INFORMATION
  Report Type: Spontaneous
  Country: US (occurrence: None)
  Receive Date: 20130530
  Receipt Date: 20131106
  Transmission Date: 20140711
  Serious: Yes (Hospitalization, Other)
  Sender: FDA-Public Use
  Company Number: AG-2012-1091

PATIENT
  Age: 59 Year
  Sex: Female
  Weight: 65.8 kg

DRUGS (24)
  1. CHLORAMBUCIL [Suspect]
     Indication: CHRONIC LYMPHOCYTIC LEUKAEMIA
     Dosage: 16MG PER DAY UNKNOWN , 1 IN 1
     Route: 048
     Dates: start: 20120416
  2. RITUXIMAB [Suspect]
     Indication: CHRONIC LYMPHOCYTIC LEUKAEMIA
     Dosage: UNKNOWN (375 MG/M2, 1 IN 1)
     Route: 042
     Dates: start: 20120416
  3. GS-1101 [Suspect]
     Indication: CHRONIC LYMPHOCYTIC LEUKAEMIA
     Dosage: 150 MG TWICE PER DAY (150 MG, 2 IN 1 DAY), ORAL
     Route: 048
     Dates: start: 20120416
  4. ALLOPURINOL(MANUFACTURER UKNOWN)(ALLOPURINOL) [Concomitant]
  5. GENTAMYCIN(GENTAMICIN) [Concomitant]
  6. ACYCLOVIR(ACICLOVIR) [Concomitant]
  7. CARVEDILOL(CARVEDILOL) [Concomitant]
  8. PROTONIX(PANTOPRAZOLE) [Concomitant]
  9. LASIX(FUROSEMIDE) [Concomitant]
  10. VANCOMYCIN(VANCOMYCIN) [Concomitant]
  11. ZYRTEC(CETIRIZINE) [Concomitant]
  12. DECADRON(DEXAMETHASONE) [Concomitant]
  13. BENADRYL(DIPHENHYDRAMINE) [Concomitant]
  14. CALTRATE(CALCIUM CARBONATE) [Concomitant]
  15. ALLEGRA(FEXOFENADINE) [Concomitant]
  16. LEXAPRO(ESCITALOPRAM) [Concomitant]
  17. OXYCODONE(OXYCODONE) [Concomitant]
  18. ALDOLACTONE(SPIRONOLACTONE) [Concomitant]
  19. BENEFIBER(GUAR GUM) [Concomitant]
  20. POTASSIUM SALT (POTASSIUM) [Concomitant]
  21. PROCHLORPERAZINE(PROCHLORPERAZINE) [Concomitant]
  22. PARACETAMOL(PARACETAMOL) [Concomitant]
  23. GENTAMICIN SULPHATE (GENTAMICIN) [Concomitant]
  24. CULTURELLE(LACTIC ACID PRODUCING ORGANISMS) [Concomitant]

REACTIONS (6)
  - Sepsis [None]
  - Bacterial infection [None]
  - Blood culture positive [None]
  - Febrile neutropenia [None]
  - Listeria test positive [None]
  - Alanine aminotransferase increased [None]
